FAERS Safety Report 13769722 (Version 1)
Quarter: 2017Q3

REPORT INFORMATION
  Report Type: Spontaneous
  Country: BR (occurrence: BR)
  Receive Date: 20170719
  Receipt Date: 20170719
  Transmission Date: 20171127
  Serious: Yes (Hospitalization)
  Sender: FDA-Public Use
  Company Number: BR-PFIZER INC-3159669

PATIENT
  Age: 39 Year
  Sex: Female
  Weight: 104 kg

DRUGS (6)
  1. KYTRIL [Concomitant]
     Active Substance: GRANISETRON HYDROCHLORIDE
     Indication: PROPHYLAXIS
     Dosage: 1 MG/ML, UNK
     Route: 042
     Dates: start: 20150721, end: 20150812
  2. OXALIPLATIN. [Suspect]
     Active Substance: OXALIPLATIN
     Indication: COLON CANCER
     Dosage: 130 MG/M2,  STRENGTH 100MG; EVERY 21DAYS; SECOND CYCLE ON 12 AUG 2015
     Route: 042
     Dates: start: 20150721, end: 20150812
  3. DEXCLORFENIRAMINA [Concomitant]
     Indication: PROPHYLAXIS
     Dosage: 1 CP
     Route: 048
     Dates: start: 20150721, end: 20150812
  4. XELODA [Suspect]
     Active Substance: CAPECITABINE
     Indication: COLON CANCER
     Dosage: 4 CAPS 12/12HRS FOR 14DAYS
     Route: 042
     Dates: start: 20150721, end: 20150812
  5. DEXAMETHASONE. [Concomitant]
     Active Substance: DEXAMETHASONE
     Indication: PROPHYLAXIS
     Dosage: 10 MG, 250 ML IN SERUM GLUCOSE
     Route: 042
     Dates: start: 20150721, end: 20150812
  6. DIFENIDRAMINA [Concomitant]
     Active Substance: DIPHENHYDRAMINE
     Indication: PROPHYLAXIS
     Dosage: 1 VIAL IN 100 ML OF PHYSIOLOGICAL SALINE
     Route: 042
     Dates: start: 20150721, end: 20150812

REACTIONS (4)
  - Malaise [Recovered/Resolved]
  - Paraesthesia [Recovered/Resolved]
  - Bradycardia [Recovered/Resolved]
  - Paraesthesia [Recovered/Resolved]

NARRATIVE: CASE EVENT DATE: 20150721
